FAERS Safety Report 8989673 (Version 3)
Quarter: 2013Q1

REPORT INFORMATION
  Report Type: Spontaneous
  Country: BR (occurrence: BR)
  Receive Date: 20121228
  Receipt Date: 20130221
  Transmission Date: 20140127
  Serious: Yes (Death, Hospitalization, Other)
  Sender: FDA-Public Use
  Company Number: BR-AMGEN-BRASP2012083287

PATIENT
  Age: 54 Year
  Sex: Female

DRUGS (9)
  1. ENBREL [Suspect]
     Indication: RHEUMATOID ARTHRITIS
     Dosage: 50 MG, UNK
     Route: 058
     Dates: start: 201204, end: 201204
  2. PREDNISONE [Concomitant]
     Dosage: 5MG PER DAY
  3. LEFLUNOMIDE [Concomitant]
     Dosage: 20 MG, DAILY
  4. OMEPRAZOLE [Concomitant]
     Dosage: UNK
  5. FELDENE [Concomitant]
     Dosage: 20MG PER DAY
  6. PROPRANOLOL [Concomitant]
     Dosage: UNK
  7. NIFEDIPINE [Concomitant]
     Dosage: UNK
  8. CALTRATE + D                       /00944201/ [Concomitant]
     Dosage: UNK
  9. ISONIAZID [Concomitant]
     Dosage: UNK

REACTIONS (11)
  - Immunosuppression [Unknown]
  - Dementia [Unknown]
  - Cerebral atrophy [Unknown]
  - Cerebral infarction [Unknown]
  - Urinary retention [Unknown]
  - Angiopathy [Unknown]
  - White matter lesion [Unknown]
  - Back pain [Unknown]
  - Confusional state [Unknown]
  - Anxiety [Unknown]
  - Infection [Fatal]
